FAERS Safety Report 17609270 (Version 1)
Quarter: 2020Q2

REPORT INFORMATION
  Report Type: Spontaneous
  Country: US (occurrence: US)
  Receive Date: 20200401
  Receipt Date: 20200401
  Transmission Date: 20200713
  Serious: No
  Sender: FDA-Public Use
  Company Number: US-BAYER-2020-053924

PATIENT
  Age: 10 Year
  Sex: Female

DRUGS (2)
  1. ELDERBERRY [SAMBUCUS NIGRA] [Concomitant]
     Dosage: UNK
  2. CLARITIN [Suspect]
     Active Substance: LORATADINE
     Dosage: 1 DF
     Route: 065

REACTIONS (1)
  - Incorrect dose administered [Unknown]
